FAERS Safety Report 5891657-7 (Version None)
Quarter: 2008Q3

REPORT INFORMATION
  Report Type: 
  Country: None (occurrence: None)
  Receive Date: 20080908
  Receipt Date: 20080711
  Transmission Date: 20090109
  Serious: No
  Sender: FDA-Public Use
  Company Number: 002#2#2007-00280

PATIENT
  Age: 62 Year
  Sex: Female
  Weight: 83.9154 kg

DRUGS (9)
  1. NEUPRO [Suspect]
     Indication: PARKINSON'S DISEASE
     Dosage: SEE IMAGE
     Route: 062
     Dates: start: 20070901, end: 20070901
  2. NEUPRO [Suspect]
     Indication: PARKINSON'S DISEASE
     Dosage: SEE IMAGE
     Route: 062
     Dates: start: 20070901, end: 20070901
  3. NEUPRO [Suspect]
     Indication: PARKINSON'S DISEASE
     Dosage: SEE IMAGE
     Route: 062
     Dates: start: 20070901, end: 20070901
  4. NEUPRO [Suspect]
     Indication: PARKINSON'S DISEASE
     Dosage: SEE IMAGE
     Route: 062
     Dates: start: 20071001, end: 20071001
  5. NEUPRO [Suspect]
     Indication: PARKINSON'S DISEASE
     Dosage: SEE IMAGE
     Route: 062
     Dates: start: 20071001
  6. IBUPROFEN TABLETS [Concomitant]
  7. ALLERGY SHOTS [Concomitant]
  8. REQUIP [Concomitant]
  9. MIRAPEX [Concomitant]

REACTIONS (5)
  - APPLICATION SITE IRRITATION [None]
  - APPLICATION SITE REACTION [None]
  - DRUG INEFFECTIVE [None]
  - FAMILY STRESS [None]
  - TREMOR [None]
